FAERS Safety Report 6153446-8 (Version None)
Quarter: 2009Q2

REPORT INFORMATION
  Report Type: 
  Country: None (occurrence: None)
  Receive Date: 20090413
  Receipt Date: 20090403
  Transmission Date: 20091009
  Serious: Yes (Hospitalization)
  Sender: FDA-Public Use
  Company Number: CZ-ABBOTT-09P-217-0502811-00

PATIENT
  Sex: Female

DRUGS (1)
  1. HUMIRA [Suspect]
     Indication: RHEUMATOID ARTHRITIS
     Route: 058
     Dates: start: 20040907, end: 20080328

REACTIONS (5)
  - DEHYDRATION [None]
  - PANCREATIC DISORDER [None]
  - SEPTIC SHOCK [None]
  - URINARY TRACT INFECTION [None]
  - UROSEPSIS [None]
